FAERS Safety Report 16955231 (Version 1)
Quarter: 2019Q4

REPORT INFORMATION
  Report Type: Spontaneous
  Country: DE (occurrence: DE)
  Receive Date: 20191024
  Receipt Date: 20191024
  Transmission Date: 20200122
  Serious: Yes (Other)
  Sender: FDA-Public Use
  Company Number: DE-TEVA-2019-DE-1126648

PATIENT
  Age: 55 Year
  Sex: Male
  Weight: 118 kg

DRUGS (2)
  1. FOLSAURE-RATIOPHARM 5 MG [Suspect]
     Active Substance: FOLIC ACID
     Indication: ILL-DEFINED DISORDER
     Dosage: 5 MG; ONCE A DAY IN THE EVENING ONE TABLET
     Route: 048
     Dates: start: 20190716, end: 20190926
  2. METEX 10 MG [Concomitant]

REACTIONS (3)
  - Dizziness [Unknown]
  - Dyspnoea at rest [Not Recovered/Not Resolved]
  - Dyspnoea [Not Recovered/Not Resolved]

NARRATIVE: CASE EVENT DATE: 201909
